FAERS Safety Report 10807743 (Version 1)
Quarter: 2015Q1

REPORT INFORMATION
  Report Type: Report from Study
  Country: US (occurrence: US)
  Receive Date: 20150217
  Receipt Date: 20150217
  Transmission Date: 20150721
  Serious: No
  Sender: FDA-Public Use
  Company Number: US-ABBVIE-14K-163-1248533-00

PATIENT
  Age: 40 Year
  Sex: Female

DRUGS (7)
  1. GABAPENTIN. [Concomitant]
     Active Substance: GABAPENTIN
     Indication: MIGRAINE
  2. IRON [Concomitant]
     Active Substance: IRON
     Indication: ANAEMIA
  3. TOPICAL PAD [Concomitant]
     Indication: RASH
     Dosage: THE PATIENT HAD FOR YEARS
     Route: 061
  4. MULTIVITAMIN [Concomitant]
     Active Substance: VITAMINS
     Indication: PRODUCT USED FOR UNKNOWN INDICATION
  5. XANAX [Concomitant]
     Active Substance: ALPRAZOLAM
     Indication: ANXIETY
  6. HUMIRA [Suspect]
     Active Substance: ADALIMUMAB
     Indication: CROHN^S DISEASE
     Dates: start: 20140305
  7. QNASL [Concomitant]
     Active Substance: BECLOMETHASONE DIPROPIONATE
     Indication: SEASONAL ALLERGY
     Dosage: TWO SPRAYS IN THE NOSE

REACTIONS (7)
  - Injection site papule [Unknown]
  - Hypoaesthesia [Unknown]
  - Underdose [Unknown]
  - Injection site haemorrhage [Unknown]
  - Hypoaesthesia [Not Recovered/Not Resolved]
  - Device issue [Unknown]
  - Paraesthesia [Unknown]

NARRATIVE: CASE EVENT DATE: 2014
